FAERS Safety Report 20624060 (Version 1)
Quarter: 2022Q1

REPORT INFORMATION
  Report Type: Spontaneous
  Country: US (occurrence: US)
  Receive Date: 20220322
  Receipt Date: 20220322
  Transmission Date: 20220424
  Serious: No
  Sender: FDA-Public Use
  Company Number: US-BoehringerIngelheim-2022-BI-160831

PATIENT
  Sex: Female

DRUGS (1)
  1. OFEV [Suspect]
     Active Substance: NINTEDANIB
     Indication: Product used for unknown indication
     Dates: start: 20220302

REACTIONS (6)
  - Cough decreased [Recovering/Resolving]
  - Dry mouth [Unknown]
  - Upper-airway cough syndrome [Recovering/Resolving]
  - Frequent bowel movements [Not Recovered/Not Resolved]
  - Headache [Recovering/Resolving]
  - Chest pain [Recovering/Resolving]

NARRATIVE: CASE EVENT DATE: 20220301
